FAERS Safety Report 5523178-5 (Version None)
Quarter: 2007Q4

REPORT INFORMATION
  Report Type: 
  Country: None (occurrence: None)
  Receive Date: 20071116
  Receipt Date: 20071015
  Transmission Date: 20080405
  Serious: Yes (Hospitalization, Other)
  Sender: FDA-Public Use
  Company Number: 07-430

PATIENT
  Age: 25 Year
  Sex: Male
  Weight: 131.5431 kg

DRUGS (2)
  1. ALEVE [Suspect]
     Indication: HEADACHE
     Dosage: 1760 MG, DAILY, ORAL
     Route: 048
     Dates: start: 20070922, end: 20071005
  2. CONCERTA [Concomitant]

REACTIONS (5)
  - BENIGN INTRACRANIAL HYPERTENSION [None]
  - BLINDNESS [None]
  - HYDROCEPHALUS [None]
  - IMPAIRED DRIVING ABILITY [None]
  - OPTIC NEURITIS [None]
